FAERS Safety Report 5818450-5 (Version None)
Quarter: 2008Q3

REPORT INFORMATION
  Report Type: 
  Country: None (occurrence: None)
  Receive Date: 20080716
  Receipt Date: 20080702
  Transmission Date: 20090109
  Serious: Yes (Death)
  Sender: FDA-Public Use
  Company Number: 2008001569

PATIENT
  Age: 47 Year
  Sex: Male

DRUGS (5)
  1. ERLOTINIB (ERLOTINIB) (TABLET) (ERLOTINIB) [Suspect]
     Indication: NON-SMALL CELL LUNG CANCER
     Dosage: (150 MG, QD) ,ORAL
     Route: 048
     Dates: start: 20071210, end: 20080106
  2. ERDOSTEINE (ERDOSTEINE) [Concomitant]
  3. CODENAL (CODENAL) [Concomitant]
  4. IVY-DRY (ZINC ACETATE) [Concomitant]
  5. LEVOFLOXACIN [Concomitant]

REACTIONS (3)
  - PNEUMOPERITONEUM [None]
  - SEPSIS [None]
  - WHITE BLOOD CELL COUNT INCREASED [None]
